FAERS Safety Report 12755967 (Version 1)
Quarter: 2016Q3

REPORT INFORMATION
  Report Type: Spontaneous
  Country: US (occurrence: US)
  Receive Date: 20160916
  Receipt Date: 20160916
  Transmission Date: 20161109
  Serious: No
  Sender: FDA-Public Use
  Company Number: US-BAUSCH-BL-2016-018096

PATIENT
  Age: 31 Year
  Sex: Male
  Weight: 79.45 kg

DRUGS (2)
  1. TROPICAMIDE OPHTHALMIC SOLUTION USP 1% [Suspect]
     Active Substance: TROPICAMIDE
     Indication: MYDRIASIS
     Route: 047
     Dates: start: 20160725
  2. TROPICAMIDE OPHTHALMIC SOLUTION USP 1% [Suspect]
     Active Substance: TROPICAMIDE
     Indication: CYCLOPLEGIA

REACTIONS (1)
  - Therapeutic response prolonged [Recovering/Resolving]

NARRATIVE: CASE EVENT DATE: 201607
